FAERS Safety Report 9992803 (Version 1)
Quarter: 2014Q1

REPORT INFORMATION
  Report Type: Spontaneous
  Country: US (occurrence: US)
  Receive Date: 20140310
  Receipt Date: 20140310
  Transmission Date: 20141002
  Serious: No
  Sender: FDA-Public Use
  Company Number: US-ASTRAZENECA-2014SE09297

PATIENT
  Sex: Female

DRUGS (2)
  1. NEXIUM [Suspect]
     Route: 048
  2. OTHER [Suspect]
     Route: 065

REACTIONS (3)
  - Condition aggravated [Unknown]
  - Abdominal discomfort [Unknown]
  - Drug ineffective [Unknown]
